FAERS Safety Report 25434378 (Version 1)
Quarter: 2025Q2

REPORT INFORMATION
  Report Type: Spontaneous
  Country: US (occurrence: US)
  Receive Date: 20250613
  Receipt Date: 20250613
  Transmission Date: 20250716
  Serious: No
  Sender: MYLAN
  Company Number: US-MYLANLABS-2025M1040703

PATIENT
  Sex: Male
  Weight: 181.43 kg

DRUGS (1)
  1. AMNESTEEM [Suspect]
     Active Substance: ISOTRETINOIN
     Indication: Product used for unknown indication
     Dosage: 20 MILLIGRAM, QD (ONCE DAILY)
     Dates: start: 20250102, end: 20250508

REACTIONS (1)
  - Dry skin [Recovering/Resolving]

NARRATIVE: CASE EVENT DATE: 20250101
